FAERS Safety Report 11518481 (Version 2)
Quarter: 2015Q4

REPORT INFORMATION
  Report Type: Spontaneous
  Country: GB (occurrence: GB)
  Receive Date: 20150917
  Receipt Date: 20151001
  Transmission Date: 20160304
  Serious: Yes (Hospitalization)
  Sender: FDA-Public Use
  Company Number: GB-PFIZER INC-2015300035

PATIENT
  Age: 56 Year
  Sex: Female
  Weight: 79 kg

DRUGS (19)
  1. IRINOTECAN HCL [Suspect]
     Active Substance: IRINOTECAN HYDROCHLORIDE
     Indication: COLORECTAL CANCER
     Dosage: 180 MG/M2, CYCLIC ON DAY 1 OF EACH 14-DAY CYCLE
     Route: 042
     Dates: start: 20150709
  2. FILGRASTIM [Concomitant]
     Active Substance: FILGRASTIM
     Indication: NEUTROPENIA
     Dosage: 300 ?G, 1X/DAY
     Route: 058
     Dates: start: 20150728, end: 20150730
  3. FLUOROURACIL. [Suspect]
     Active Substance: FLUOROURACIL
     Indication: COLORECTAL CANCER
     Dosage: 2400 MG/M2, OVER 46 HOURS, DAY 1 OF EACH 14-DAY CYCLE
     Route: 042
     Dates: start: 20150709
  4. ATROPINE. [Concomitant]
     Active Substance: ATROPINE
     Dosage: UNK
     Route: 058
     Dates: start: 20150709
  5. ONDANSETRON [Concomitant]
     Active Substance: ONDANSETRON
     Indication: PREMEDICATION
     Dosage: 8 MG, STAT
     Dates: start: 20150709
  6. GAVISCON /01405501/ [Concomitant]
     Active Substance: SODIUM ALGINATE\SODIUM BICARBONATE
     Indication: CHEST PAIN
  7. FOLINIC ACID [Concomitant]
     Active Substance: LEUCOVORIN
     Indication: COLORECTAL CANCER
     Dosage: 400 MG/M2, UNK
     Route: 042
     Dates: start: 20150709
  8. ALUMINIUM HYDROXIDE W/MAGNESIUM TRISILICATE [Concomitant]
     Indication: CHEST PAIN
     Dosage: 10 ML, AS NEEDED
     Route: 048
  9. DEXAMETHASONE. [Concomitant]
     Active Substance: DEXAMETHASONE
     Dosage: 8 MG, 2X/DAY
     Route: 048
     Dates: start: 20150709
  10. DOMPERIDONE [Concomitant]
     Active Substance: DOMPERIDONE
     Indication: PROPHYLAXIS OF NAUSEA AND VOMITING
  11. LEUCOVORIN /00566702/ [Concomitant]
     Active Substance: LEUCOVORIN
     Indication: COLORECTAL CANCER
     Dosage: 400 MG/M2, UNK
     Route: 042
     Dates: start: 20150709
  12. ALUMINIUM HYDROXIDE W/MAGNESIUM TRISILICATE [Concomitant]
     Indication: EPIGASTRIC DISCOMFORT
     Dosage: 10 ML, AS NEEDED
     Route: 048
     Dates: start: 20150716, end: 20150803
  13. VELIPARIB [Suspect]
     Active Substance: VELIPARIB
     Indication: COLORECTAL CANCER
     Dosage: 2 IN 1D, DAY-2 THOUGH DAY 5 OF EACH 14-DAY CYCLE
     Route: 048
     Dates: start: 20150707
  14. ATROPINE. [Concomitant]
     Active Substance: ATROPINE
     Indication: PREMEDICATION
     Dosage: 0.25 MG, UNK
     Route: 040
  15. DEXAMETHASONE. [Concomitant]
     Active Substance: DEXAMETHASONE
     Indication: PROPHYLAXIS OF NAUSEA AND VOMITING
     Dosage: 4 MG, 2X/DAY (8 MG)
     Route: 048
     Dates: start: 20150709
  16. GAVISCON /01405501/ [Concomitant]
     Active Substance: SODIUM ALGINATE\SODIUM BICARBONATE
     Indication: EPIGASTRIC DISCOMFORT
     Dosage: 10 ML, AS NEEDED
     Route: 048
  17. DEXAMETHASONE. [Concomitant]
     Active Substance: DEXAMETHASONE
     Indication: PREMEDICATION
     Dosage: 8 MG, UNK
     Route: 040
     Dates: start: 20150709
  18. FLUOROURACIL. [Suspect]
     Active Substance: FLUOROURACIL
     Dosage: 400 MG/M2, UP TO 15 MINUTES, DAY 1 OF EACH 14-DAY CYCLE
     Route: 042
     Dates: start: 20150709
  19. LANSOPRAZOLE. [Concomitant]
     Active Substance: LANSOPRAZOLE
     Indication: EPIGASTRIC DISCOMFORT
     Dosage: 30 MG, 1X/DAY
     Route: 048
     Dates: start: 20150722

REACTIONS (2)
  - Chest pain [Unknown]
  - Chest pain [Recovered/Resolved]

NARRATIVE: CASE EVENT DATE: 20150713
